FAERS Safety Report 23030532 (Version 1)
Quarter: 2023Q4

REPORT INFORMATION
  Report Type: Report from Study
  Country: US (occurrence: US)
  Receive Date: 20231005
  Receipt Date: 20231005
  Transmission Date: 20240109
  Serious: Yes (Death, Hospitalization, Other)
  Sender: FDA-Public Use
  Company Number: US-EXELIXIS-CABO-23067051

PATIENT
  Age: 35 Year
  Sex: Male
  Weight: 49.8 kg

DRUGS (17)
  1. CABOMETYX [Suspect]
     Active Substance: CABOZANTINIB S-MALATE
     Indication: Renal cell carcinoma stage IV
     Dosage: 60 MG, QD
     Route: 048
     Dates: start: 202207
  2. CABOMETYX [Suspect]
     Active Substance: CABOZANTINIB S-MALATE
     Dosage: 40 MG, QD
     Route: 048
     Dates: start: 20230601, end: 20230708
  3. OPDIVO [Suspect]
     Active Substance: NIVOLUMAB
     Indication: Renal cell carcinoma stage IV
     Dosage: 480 MG, Q4WEEKS
     Route: 042
  4. DOCUSATE [Concomitant]
     Active Substance: DOCUSATE
  5. DRONABINOL [Concomitant]
     Active Substance: DRONABINOL
  6. DUONEB [Concomitant]
     Active Substance: ALBUTEROL SULFATE\IPRATROPIUM BROMIDE
  7. FENTANYL [Concomitant]
     Active Substance: FENTANYL
  8. GABAPENTIN [Concomitant]
     Active Substance: GABAPENTIN
  9. METOPROLOL [Concomitant]
     Active Substance: METOPROLOL
  10. MIRTAZAPINE [Concomitant]
     Active Substance: MIRTAZAPINE
  11. MORPHINE [Concomitant]
     Active Substance: MORPHINE
  12. REGLAN [Concomitant]
     Active Substance: METOCLOPRAMIDE HYDROCHLORIDE
  13. SENOKOT [Concomitant]
     Active Substance: SENNOSIDES
  14. SODIUM CHLORIDE [Concomitant]
     Active Substance: SODIUM CHLORIDE
  15. TYLENOL [Concomitant]
     Active Substance: ACETAMINOPHEN
  16. ZOFRAN [Concomitant]
     Active Substance: ONDANSETRON HYDROCHLORIDE
  17. DULOXETINE [Concomitant]
     Active Substance: DULOXETINE

REACTIONS (20)
  - Neuropathy peripheral [Unknown]
  - Acute respiratory failure [Fatal]
  - Pericardial effusion [Fatal]
  - Malignant pleural effusion [Fatal]
  - Thoracic vertebral fracture [Unknown]
  - Pulmonary oedema [Unknown]
  - Ascites [Unknown]
  - Pneumonia [Unknown]
  - Acute kidney injury [Unknown]
  - Malignant neoplasm progression [Fatal]
  - Metastases to abdominal cavity [Unknown]
  - Nausea [Recovered/Resolved]
  - Vomiting [Recovered/Resolved]
  - Weight decreased [Unknown]
  - Peripheral swelling [Unknown]
  - Appetite disorder [Unknown]
  - Blood pressure systolic decreased [Recovering/Resolving]
  - Hypomagnesaemia [Unknown]
  - Hyponatraemia [Unknown]
  - Anaemia [Unknown]

NARRATIVE: CASE EVENT DATE: 20230501
